FAERS Safety Report 4636662-3 (Version None)
Quarter: 2005Q2

REPORT INFORMATION
  Report Type: 
  Country: None (occurrence: None)
  Receive Date: 20050328
  Receipt Date: 20041207
  Transmission Date: 20051028
  Serious: No
  Sender: FDA-Public Use
  Company Number: USA041285530

PATIENT
  Age: 48 Year
  Sex: Female

DRUGS (6)
  1. STRATTERA [Suspect]
     Indication: ATTENTION DEFICIT/HYPERACTIVITY DISORDER
     Dosage: 180 MG DAY
     Dates: start: 20040901
  2. LAMICTAL [Concomitant]
  3. TOPAMAX [Concomitant]
  4. PROVIGIL [Concomitant]
  5. SINGULAIR (MONTELUKAST) [Concomitant]
  6. ROBAXIN [Concomitant]

REACTIONS (1)
  - PRESCRIBED OVERDOSE [None]
